FAERS Safety Report 18172803 (Version 2)
Quarter: 2020Q4

REPORT INFORMATION
  Report Type: Spontaneous
  Country: US (occurrence: US)
  Receive Date: 20200820
  Receipt Date: 20201216
  Transmission Date: 20210113
  Serious: Yes (Other)
  Sender: FDA-Public Use
  Company Number: US-GILEAD-2020-0491058

PATIENT
  Age: 57 Year
  Sex: Male

DRUGS (2)
  1. TRUVADA [Suspect]
     Active Substance: EMTRICITABINE\TENOFOVIR DISOPROXIL FUMARATE
     Indication: HIV INFECTION
     Dosage: UNK
     Route: 048
     Dates: start: 2008, end: 2014
  2. CALCIUM [Concomitant]
     Active Substance: CALCIUM

REACTIONS (6)
  - Emotional distress [Unknown]
  - Chronic kidney disease [Not Recovered/Not Resolved]
  - Anhedonia [Unknown]
  - Osteopenia [Not Recovered/Not Resolved]
  - Pain [Unknown]
  - Anxiety [Unknown]

NARRATIVE: CASE EVENT DATE: 201402
